FAERS Safety Report 10513815 (Version 2)
Quarter: 2015Q2

REPORT INFORMATION
  Report Type: Report from Study
  Country: US (occurrence: US)
  Receive Date: 20141013
  Receipt Date: 20150501
  Transmission Date: 20150821
  Serious: Yes (Hospitalization)
  Sender: FDA-Public Use
  Company Number: US-ABBVIE-14K-163-1291513-00

PATIENT
  Age: 32 Year
  Sex: Female
  Weight: 55.39 kg

DRUGS (6)
  1. HUMIRA [Suspect]
     Active Substance: ADALIMUMAB
     Indication: COLITIS ULCERATIVE
     Route: 050
     Dates: start: 201401, end: 201401
  2. HUMIRA [Suspect]
     Active Substance: ADALIMUMAB
     Route: 050
     Dates: start: 201404, end: 201501
  3. HUMIRA [Suspect]
     Active Substance: ADALIMUMAB
     Route: 050
     Dates: start: 201401, end: 201401
  4. HUMIRA [Suspect]
     Active Substance: ADALIMUMAB
     Route: 050
     Dates: start: 201403, end: 201403
  5. HUMIRA [Suspect]
     Active Substance: ADALIMUMAB
     Route: 050
     Dates: start: 201403, end: 201403
  6. PRENATAL VITAMINS [Concomitant]
     Active Substance: VITAMINS
     Indication: PREGNANCY

REACTIONS (7)
  - Clostridium difficile infection [Recovered/Resolved]
  - Blood pressure increased [Recovered/Resolved]
  - Nerve compression [Recovered/Resolved]
  - Pyrexia [Recovered/Resolved]
  - Exposure during pregnancy [Unknown]
  - Drug ineffective [Not Recovered/Not Resolved]
  - Pancreatitis chronic [Recovered/Resolved]

NARRATIVE: CASE EVENT DATE: 2014
